FAERS Safety Report 14534243 (Version 1)
Quarter: 2018Q1

REPORT INFORMATION
  Report Type: Spontaneous
  Country: US (occurrence: US)
  Receive Date: 20180214
  Receipt Date: 20180214
  Transmission Date: 20180509
  Serious: No
  Sender: FDA-Public Use
  Company Number: None

PATIENT
  Age: 9 Year
  Sex: Male

DRUGS (1)
  1. ZORTRESS [Suspect]
     Active Substance: EVEROLIMUS
     Indication: TUBEROUS SCLEROSIS COMPLEX
     Dosage: FREQUENCY - 2 QD
     Route: 048
     Dates: start: 20161111

REACTIONS (3)
  - Vomiting [None]
  - Influenza [None]
  - Stomatitis [None]

NARRATIVE: CASE EVENT DATE: 20161111
